FAERS Safety Report 20677467 (Version 3)
Quarter: 2022Q3

REPORT INFORMATION
  Report Type: Spontaneous
  Country: GB (occurrence: None)
  Receive Date: 20220406
  Receipt Date: 20220908
  Transmission Date: 20221027
  Serious: Yes (Hospitalization, Other)
  Sender: FDA-Public Use
  Company Number: GB-Hikma Pharmaceuticals USA Inc.-GB-H14001-22-00960

PATIENT
  Age: 0 Year
  Sex: Female
  Weight: 46.3 kg

DRUGS (3)
  1. CARBOPLATIN [Suspect]
     Active Substance: CARBOPLATIN
     Indication: Anal squamous cell carcinoma
     Dosage: AUC 5
     Route: 042
     Dates: start: 20220308
  2. RETIFANLIMAB [Suspect]
     Active Substance: RETIFANLIMAB
     Indication: Anal squamous cell carcinoma
     Dosage: UNKNOWN, BLINDED
     Route: 042
     Dates: start: 20220308
  3. PACLITAXEL [Suspect]
     Active Substance: PACLITAXEL
     Indication: Anal squamous cell carcinoma
     Route: 042
     Dates: start: 20220308

REACTIONS (7)
  - Dizziness [Recovered/Resolved]
  - Fall [Recovered/Resolved]
  - Blood pressure systolic decreased [Unknown]
  - Orthostatic hypotension [Unknown]
  - Vomiting [Recovered/Resolved]
  - Diarrhoea [Recovered/Resolved]
  - Dehydration [Unknown]

NARRATIVE: CASE EVENT DATE: 20220316
